FAERS Safety Report 21396960 (Version 1)
Quarter: 2022Q3

REPORT INFORMATION
  Report Type: Spontaneous
  Country: FR (occurrence: FR)
  Receive Date: 20220930
  Receipt Date: 20220930
  Transmission Date: 20221026
  Serious: Yes (Hospitalization)
  Sender: FDA-Public Use
  Company Number: None

PATIENT
  Age: 61 Year
  Sex: Male
  Weight: 105 kg

DRUGS (9)
  1. EZETIMIBE\SIMVASTATIN [Suspect]
     Active Substance: EZETIMIBE\SIMVASTATIN
     Indication: Cardiovascular event prophylaxis
     Dosage: 1 DOSAGE FORM, QD
     Route: 048
  2. KARDEGIC [Suspect]
     Active Substance: ASPIRIN DL-LYSINE
     Indication: Cardiovascular event prophylaxis
     Dosage: 1 DOSAGE FORM, QD; POWDER FOR ORAL SOLUTION IN SINGLE-DOSE SACHET
     Route: 048
  3. LEVOFLOXACIN [Suspect]
     Active Substance: LEVOFLOXACIN
     Indication: Serratia bacteraemia
     Dosage: 2 DOSAGE FORM, QD; SCORED FILM COATED TABLET
     Route: 048
     Dates: start: 20220422, end: 20220513
  4. RAMIPRIL [Suspect]
     Active Substance: RAMIPRIL
     Indication: Cardiovascular event prophylaxis
     Dosage: 1 DOSAGE FORM, QD; SCORED TABLET
     Route: 048
  5. METRONIDAZOLE [Suspect]
     Active Substance: METRONIDAZOLE
     Indication: Serratia bacteraemia
     Dosage: 3 DOSAGE FORM, QD
     Route: 048
     Dates: start: 20220422, end: 20220513
  6. LINEZOLID [Concomitant]
     Active Substance: LINEZOLID
     Indication: Serratia bacteraemia
     Dosage: 2 DOSAGE FORM, QD
     Route: 048
     Dates: start: 20220422, end: 20220509
  7. ATENOLOL [Concomitant]
     Active Substance: ATENOLOL
     Indication: Hypertension
     Dosage: 1 DOSAGE FORM, QD; COATED TABLET SCORED
     Route: 048
  8. LOVENOX [Concomitant]
     Active Substance: ENOXAPARIN SODIUM
     Indication: Pulmonary embolism
     Dosage: 2 DOSAGE FORM, QD; SOLUTION FOR INJECTION IN PRE-FILLED SYRINGE
     Route: 058
  9. PANTOPRAZOLE [Concomitant]
     Active Substance: PANTOPRAZOLE
     Dosage: 40 MILLIGRAM, QD
     Route: 048

REACTIONS (1)
  - Pancytopenia [Recovered/Resolved]

NARRATIVE: CASE EVENT DATE: 20220429
